FAERS Safety Report 4583762-2 (Version None)
Quarter: 2005Q1

REPORT INFORMATION
  Report Type: 
  Country: None (occurrence: None)
  Receive Date: 20050211
  Receipt Date: 20050203
  Transmission Date: 20050727
  Serious: Yes (Hospitalization)
  Sender: FDA-Public Use
  Company Number: K200500192

PATIENT
  Age: 51 Year
  Sex: Female
  Weight: 62.6 kg

DRUGS (7)
  1. SONATA [Suspect]
     Indication: INSOMNIA
     Dosage: 10 MG, QHS, ORAL
     Route: 048
     Dates: start: 20050101, end: 20050101
  2. SONATA [Suspect]
     Indication: INSOMNIA
     Dosage: 10 MG, QHS, ORAL
     Route: 048
     Dates: start: 20050101
  3. DURAGESIC (FENTANYL) PATCH [Concomitant]
  4. BEXTRA [Concomitant]
  5. XANAX [Concomitant]
  6. EFFEXOR [Concomitant]
  7. ULTRACET [Concomitant]

REACTIONS (5)
  - ASTHENIA [None]
  - DRUG DEPENDENCE [None]
  - DRUG WITHDRAWAL SYNDROME [None]
  - MYASTHENIC SYNDROME [None]
  - TREMOR [None]
